FAERS Safety Report 24000574 (Version 1)
Quarter: 2024Q2

REPORT INFORMATION
  Report Type: Spontaneous
  Country: US (occurrence: US)
  Receive Date: 20240621
  Receipt Date: 20240621
  Transmission Date: 20240715
  Serious: No
  Sender: FDA-Public Use
  Company Number: US-MYLANLABS-2024M1052926

PATIENT
  Sex: Female
  Weight: 66.68 kg

DRUGS (2)
  1. WIXELA INHUB [Suspect]
     Active Substance: FLUTICASONE PROPIONATE\SALMETEROL XINAFOATE
     Indication: Chronic obstructive pulmonary disease
     Dosage: 250/50 MICROGRAM (TWICE A DAY)
     Route: 055
     Dates: end: 20240606
  2. TIOTROPIUM BROMIDE [Concomitant]
     Active Substance: TIOTROPIUM BROMIDE
     Dosage: UNK
     Route: 065

REACTIONS (6)
  - Rash [Unknown]
  - Swelling [Unknown]
  - Eye irritation [Unknown]
  - Rash macular [Unknown]
  - Hyperventilation [Unknown]
  - Hypersensitivity [Unknown]
